FAERS Safety Report 5086035-7 (Version None)
Quarter: 2006Q3

REPORT INFORMATION
  Report Type: 
  Country: None (occurrence: None)
  Receive Date: 20060817
  Receipt Date: 20060804
  Transmission Date: 20061208
  Serious: Yes (Death)
  Sender: FDA-Public Use
  Company Number: SPV1-2006-00353

PATIENT
  Sex: 0

DRUGS (1)
  1. CARBAMAZEPINE [Suspect]

REACTIONS (6)
  - ALPHA TUMOUR NECROSIS FACTOR INCREASED [None]
  - DRUG HYPERSENSITIVITY [None]
  - MULTI-ORGAN FAILURE [None]
  - PYREXIA [None]
  - RASH ERYTHEMATOUS [None]
  - RESPIRATORY FAILURE [None]
